FAERS Safety Report 11121651 (Version 1)
Quarter: 2015Q2

REPORT INFORMATION
  Report Type: Report from Study
  Country: TW (occurrence: TW)
  Receive Date: 20150519
  Receipt Date: 20150519
  Transmission Date: 20150821
  Serious: Yes (Hospitalization)
  Sender: FDA-Public Use
  Company Number: TW-GSKJP-KK201308216GW685698X003

PATIENT
  Age: 72 Year
  Sex: Male
  Weight: 51 kg

DRUGS (37)
  1. TOPAAL [Concomitant]
     Active Substance: ALGINIC ACID\ALUMINUM HYDROXIDE\MAGNESIUM CARBONATE
     Indication: GASTROOESOPHAGEAL REFLUX DISEASE
     Dosage: 200 MG, TID
     Route: 048
     Dates: start: 20130305, end: 20130320
  2. SALICYLIC ACID. [Concomitant]
     Active Substance: SALICYLIC ACID
     Indication: TINEA INFECTION
  3. ACETAMINOPHEN. [Concomitant]
     Active Substance: ACETAMINOPHEN
     Indication: BACK PAIN
     Dosage: 500 MG, QID
     Route: 048
     Dates: start: 20130328, end: 20130425
  4. LORATADINE W/PSEUDOEPHEDRINE SULFATE [Concomitant]
     Indication: NASAL OBSTRUCTION
     Dosage: 10 MG, BID
     Route: 048
     Dates: start: 20130308, end: 20130320
  5. FAMOTIDINE. [Concomitant]
     Active Substance: FAMOTIDINE
     Indication: GASTROOESOPHAGEAL REFLUX DISEASE
  6. FLURBIPROFEN. [Concomitant]
     Active Substance: FLURBIPROFEN
     Indication: BACK PAIN
     Dosage: 40 MG, Q4H
     Route: 061
     Dates: start: 20130328, end: 20130425
  7. DEXTROMETHORPHAN [Concomitant]
     Active Substance: DEXTROMETHORPHAN
     Indication: PNEUMONIA
  8. ACETAMINOPHEN. [Concomitant]
     Active Substance: ACETAMINOPHEN
     Indication: BACK PAIN
  9. BUSPIRONE HYDROCHLORIDE. [Concomitant]
     Active Substance: BUSPIRONE HYDROCHLORIDE
     Dosage: 10 MG, UNK
     Route: 048
     Dates: start: 20130326, end: 20130425
  10. FENSPIRIDE [Concomitant]
     Active Substance: FENSPIRIDE
     Dosage: 40 MG, TID
     Dates: start: 20130326
  11. GLIBENCLAMIDE [Concomitant]
     Active Substance: GLYBURIDE
     Indication: DIABETES MELLITUS
     Dosage: 5 MG, BID
     Route: 048
     Dates: start: 20130305, end: 20130320
  12. TOPAAL [Concomitant]
     Active Substance: ALGINIC ACID\ALUMINUM HYDROXIDE\MAGNESIUM CARBONATE
     Indication: GASTROOESOPHAGEAL REFLUX DISEASE
  13. BUSPIRONE HYDROCHLORIDE. [Concomitant]
     Active Substance: BUSPIRONE HYDROCHLORIDE
     Indication: INSOMNIA
     Dosage: 10 MG, UNK
     Route: 048
     Dates: start: 20130305, end: 20130320
  14. METHYLPREDNISOLONE. [Concomitant]
     Active Substance: METHYLPREDNISOLONE
     Indication: CHRONIC OBSTRUCTIVE PULMONARY DISEASE
     Dosage: 4 MG, QID
     Route: 048
     Dates: start: 20130311, end: 20130320
  15. METHYLPREDNISOLONE. [Concomitant]
     Active Substance: METHYLPREDNISOLONE
     Indication: INSOMNIA
     Dosage: 8 MG, QID
     Route: 048
     Dates: start: 20130326, end: 20130415
  16. METHYLPREDNISOLONE. [Concomitant]
     Active Substance: METHYLPREDNISOLONE
     Indication: INSOMNIA
     Dosage: 8 MG, QID
     Route: 048
     Dates: start: 20130326, end: 20130415
  17. INSULIN [Concomitant]
     Active Substance: INSULIN NOS
     Indication: DIABETES MELLITUS
     Dosage: 100 ML, PRN
     Route: 042
     Dates: start: 20130315, end: 20130315
  18. FENSPIRIDE [Concomitant]
     Active Substance: FENSPIRIDE
     Dosage: 40 MG, TID
     Dates: start: 20130326
  19. NISOLDIPINE. [Concomitant]
     Active Substance: NISOLDIPINE
     Indication: MYOCARDIAL ISCHAEMIA
     Dosage: 5 MG, BID
     Route: 048
     Dates: start: 20130307, end: 20130320
  20. BUSPIRONE HYDROCHLORIDE. [Concomitant]
     Active Substance: BUSPIRONE HYDROCHLORIDE
     Dosage: 10 MG, UNK
     Route: 048
     Dates: start: 20130326, end: 20130425
  21. THEOPHYLLINE MONOHYDRATE [Concomitant]
     Indication: CHRONIC OBSTRUCTIVE PULMONARY DISEASE
     Dosage: 400 MG, OD
     Route: 048
     Dates: start: 20130326
  22. FAMOTIDINE. [Concomitant]
     Active Substance: FAMOTIDINE
     Indication: GASTROOESOPHAGEAL REFLUX DISEASE
     Dosage: 20 MG, BID
     Route: 048
     Dates: start: 20130326
  23. MESNA. [Concomitant]
     Active Substance: MESNA
     Indication: PRODUCTIVE COUGH
     Dosage: 200 MG, QID
     Route: 055
     Dates: start: 20130306, end: 20130320
  24. MESNA. [Concomitant]
     Active Substance: MESNA
     Indication: PRODUCTIVE COUGH
  25. COMBIVENT [Concomitant]
     Active Substance: ALBUTEROL SULFATE\IPRATROPIUM BROMIDE
     Dosage: 2.5 MG, QID
     Route: 055
     Dates: start: 20130313, end: 20130320
  26. FLUTICASONE FUROATE [Suspect]
     Active Substance: FLUTICASONE FUROATE
     Indication: CHRONIC OBSTRUCTIVE PULMONARY DISEASE
     Dosage: 100 UG, QD
     Route: 055
     Dates: start: 20121024
  27. THEOPHYLLINE [Concomitant]
     Active Substance: THEOPHYLLINE ANHYDROUS
     Indication: CHRONIC OBSTRUCTIVE PULMONARY DISEASE
     Dosage: 400 MG, OD
     Route: 048
     Dates: start: 20130305, end: 20130320
  28. COMBIVENT [Concomitant]
     Active Substance: ALBUTEROL SULFATE\IPRATROPIUM BROMIDE
     Indication: CHRONIC OBSTRUCTIVE PULMONARY DISEASE
     Dosage: 2.5 ML, PRN
     Route: 055
     Dates: start: 20130326, end: 20130415
  29. COMBIVENT [Concomitant]
     Active Substance: ALBUTEROL SULFATE\IPRATROPIUM BROMIDE
  30. FENSPIRIDE [Concomitant]
     Active Substance: FENSPIRIDE
     Indication: CHRONIC OBSTRUCTIVE PULMONARY DISEASE
     Dosage: 40 MG, TID
     Route: 048
     Dates: start: 20130305, end: 20130320
  31. SALICYLIC ACID. [Concomitant]
     Active Substance: SALICYLIC ACID
     Indication: TINEA INFECTION
     Dosage: 2 %, BID
     Route: 061
     Dates: start: 20121009
  32. NISOLDIPINE. [Concomitant]
     Active Substance: NISOLDIPINE
     Indication: MYOCARDIAL ISCHAEMIA
  33. TERBUTALINE SULFATE. [Concomitant]
     Active Substance: TERBUTALINE SULFATE
     Indication: CHRONIC OBSTRUCTIVE PULMONARY DISEASE
     Dosage: 2.5 MG/ML, BID
     Route: 055
     Dates: start: 20130307, end: 20130320
  34. STROCAIN [Concomitant]
     Active Substance: OXETHAZAINE
     Indication: GASTRITIS
     Dosage: 5 MG, PRN
     Route: 048
     Dates: start: 20130310, end: 20130320
  35. EBASTINE [Concomitant]
     Active Substance: EBASTINE
     Indication: NASAL OBSTRUCTION
     Dosage: 10 MG, OD
     Route: 048
     Dates: start: 20130326
  36. DEXTROMETHORPHAN [Concomitant]
     Active Substance: DEXTROMETHORPHAN
     Indication: COUGH
     Dosage: 60 MG, OD
     Route: 048
     Dates: start: 20130308, end: 20130320
  37. DEXTROMETHORPHAN [Concomitant]
     Active Substance: DEXTROMETHORPHAN
     Indication: PNEUMONIA

REACTIONS (1)
  - Chronic obstructive pulmonary disease [Recovered/Resolved]

NARRATIVE: CASE EVENT DATE: 20130413
